FAERS Safety Report 21843793 (Version 4)
Quarter: 2023Q1

REPORT INFORMATION
  Report Type: Spontaneous
  Country: MX (occurrence: MX)
  Receive Date: 20230110
  Receipt Date: 20230306
  Transmission Date: 20230417
  Serious: Yes (Hospitalization)
  Sender: FDA-Public Use
  Company Number: MX-BAYER-2023P001749

PATIENT
  Age: 62 Year
  Sex: Male

DRUGS (1)
  1. LAROTRECTINIB [Suspect]
     Active Substance: LAROTRECTINIB
     Indication: Adenoid cystic carcinoma
     Dosage: 100 MG, BID
     Route: 048
     Dates: start: 20220820, end: 20221212

REACTIONS (3)
  - Adenoid cystic carcinoma [Not Recovered/Not Resolved]
  - Metastases to lung [Not Recovered/Not Resolved]
  - Drug ineffective [None]

NARRATIVE: CASE EVENT DATE: 20221212
